FAERS Safety Report 8334550-2 (Version None)
Quarter: 2012Q2

REPORT INFORMATION
  Report Type: 
  Country: None (occurrence: None)
  Receive Date: 20120503
  Receipt Date: 20110404
  Transmission Date: 20120825
  Serious: No
  Sender: FDA-Public Use
  Company Number: US-TEVA-2011001640

PATIENT
  Sex: Female
  Weight: 87.168 kg

DRUGS (10)
  1. NUVIGIL [Suspect]
     Indication: SLEEP APNOEA SYNDROME
     Dosage: 150 MILLIGRAM;
     Route: 048
     Dates: start: 20110131, end: 20110206
  2. LASIX [Concomitant]
  3. SEROQUEL XR [Concomitant]
  4. CYMBALTA [Concomitant]
  5. TOPAMAX [Concomitant]
  6. TOPROL-XL [Concomitant]
  7. RYTHMOL [Concomitant]
  8. NUVIGIL [Suspect]
     Indication: NARCOLEPSY
  9. NORCO [Concomitant]
  10. SYNTHROID [Concomitant]

REACTIONS (1)
  - DRUG INEFFECTIVE [None]
